FAERS Safety Report 17013901 (Version 2)
Quarter: 2020Q1

REPORT INFORMATION
  Report Type: Report from Study
  Country: US (occurrence: US)
  Receive Date: 20191111
  Receipt Date: 20200114
  Transmission Date: 20200409
  Serious: No
  Sender: FDA-Public Use
  Company Number: NVSC2019US025346

PATIENT
  Sex: Male

DRUGS (1)
  1. COSENTYX [Suspect]
     Active Substance: SECUKINUMAB
     Indication: PRODUCT USED FOR UNKNOWN INDICATION
     Dosage: 300 MG (BATCH NUMBER WAS NOT REPORTED)
     Route: 058
     Dates: start: 20180901, end: 20190401

REACTIONS (4)
  - Pruritus [Unknown]
  - Erythema [Unknown]
  - Treatment failure [Unknown]
  - Condition aggravated [Unknown]
